FAERS Safety Report 6305906-4 (Version None)
Quarter: 2009Q3

REPORT INFORMATION
  Report Type: 
  Country: None (occurrence: None)
  Receive Date: 20090810
  Receipt Date: 20090810
  Transmission Date: 20100115
  Serious: Yes (Hospitalization)
  Sender: FDA-Public Use
  Company Number: None

PATIENT
  Sex: Female
  Weight: 115.6 kg

DRUGS (3)
  1. TAXOL [Suspect]
     Dosage: 312 MG
  2. CARBOPLATIN [Suspect]
     Dosage: 1050 MG
  3. ERBITUX [Suspect]
     Dosage: 2668 MG

REACTIONS (6)
  - CHILLS [None]
  - HYPERGLYCAEMIA [None]
  - INFECTION [None]
  - NAUSEA [None]
  - PYREXIA [None]
  - SEPSIS [None]
